FAERS Safety Report 21286230 (Version 1)
Quarter: 2022Q3

REPORT INFORMATION
  Report Type: Spontaneous
  Country: ID (occurrence: ID)
  Receive Date: 20220902
  Receipt Date: 20220902
  Transmission Date: 20221027
  Serious: Yes (Death)
  Sender: FDA-Public Use
  Company Number: ID-KI BIOPHARMA, LLC-2022KAM00201

PATIENT
  Age: 65 Year
  Sex: Female

DRUGS (5)
  1. HUMAN VARICELLA-ZOSTER IMMUNE GLOBULIN [Suspect]
     Active Substance: HUMAN VARICELLA-ZOSTER IMMUNE GLOBULIN
     Indication: Varicella zoster pneumonia
     Dosage: ADMINISTERED ON SECOND DAY OF CARE
     Route: 065
  2. ACYCLOVIR [Concomitant]
     Active Substance: ACYCLOVIR
     Indication: Varicella zoster pneumonia
     Dosage: 800 MG EVERY 8 HOURS
     Route: 042
  3. LEVOFLOXACIN [Concomitant]
     Active Substance: LEVOFLOXACIN
     Indication: Pneumonia bacterial
     Dosage: 750 MG, 1X/DAY
     Route: 065
  4. METHYLPREDNISOLONE [Concomitant]
     Active Substance: METHYLPREDNISOLONE
     Dosage: 62.5 MG EVERY 8 HOURS
     Route: 065
  5. UNSPECIFIED VASOPRESSOR [Concomitant]
     Route: 065

REACTIONS (2)
  - Septic shock [Fatal]
  - Drug ineffective [Fatal]
